FAERS Safety Report 6342794-4 (Version None)
Quarter: 2009Q3

REPORT INFORMATION
  Report Type: 
  Country: None (occurrence: None)
  Receive Date: 20090908
  Receipt Date: 20090831
  Transmission Date: 20100115
  Serious: Yes (Hospitalization)
  Sender: FDA-Public Use
  Company Number: ES-WYE-G04337309

PATIENT
  Age: 66 Year
  Sex: Male
  Weight: 82 kg

DRUGS (1)
  1. DOBUPAL [Suspect]
     Indication: DEPRESSION
     Route: 048
     Dates: start: 20090616, end: 20090618

REACTIONS (1)
  - HYPERTENSIVE CRISIS [None]
